FAERS Safety Report 8155732-9 (Version None)
Quarter: 2012Q1

REPORT INFORMATION
  Report Type: 
  Country: None (occurrence: None)
  Receive Date: 20120222
  Receipt Date: 20120213
  Transmission Date: 20120608
  Serious: Yes (Other)
  Sender: FDA-Public Use
  Company Number: DE-JNJFOC-20120105295

PATIENT
  Sex: Male
  Weight: 90.5 kg

DRUGS (4)
  1. CARBAMAZEPINE [Concomitant]
     Indication: CYCLOTHYMIC DISORDER
     Route: 065
  2. LITHIUM [Concomitant]
     Indication: CYCLOTHYMIC DISORDER
     Route: 065
  3. ZYTIGA [Suspect]
     Indication: PROSTATE CANCER METASTATIC
     Route: 048
     Dates: start: 20110701
  4. ANALGESIC, NOS [Concomitant]
     Indication: PAIN
     Route: 065

REACTIONS (6)
  - RED BLOOD CELL SEDIMENTATION RATE INCREASED [None]
  - C-REACTIVE PROTEIN INCREASED [None]
  - MUSCLE ATROPHY [None]
  - URINARY INCONTINENCE [None]
  - POLYNEUROPATHY [None]
  - TREMOR [None]
